FAERS Safety Report 19125146 (Version 1)
Quarter: 2021Q2

REPORT INFORMATION
  Report Type: Spontaneous
  Country: ES (occurrence: ES)
  Receive Date: 20210412
  Receipt Date: 20210412
  Transmission Date: 20210717
  Serious: Yes (Other)
  Sender: FDA-Public Use
  Company Number: ES-SA-2021SA118653

PATIENT
  Sex: Female

DRUGS (4)
  1. LANTUS [Suspect]
     Active Substance: INSULIN GLARGINE
     Dosage: UNK
     Route: 058
  2. THROMBOCID [PENTOSAN POLYSULFATE SODIUM] [Concomitant]
     Indication: LIMB DISCOMFORT
     Dosage: UNK
     Route: 065
  3. HEPARIN [Concomitant]
     Active Substance: HEPARIN SODIUM
     Indication: LIMB DISCOMFORT
     Dosage: UNK
     Route: 065
  4. HEMOVAS [Concomitant]
     Indication: LIMB DISCOMFORT
     Dosage: UNK
     Route: 065

REACTIONS (10)
  - Condition aggravated [Unknown]
  - Groin pain [Unknown]
  - Phlebitis [Unknown]
  - Thrombosis [Unknown]
  - Scab [Unknown]
  - Osteoarthritis [Unknown]
  - Arthritis [Unknown]
  - Pruritus [Unknown]
  - Tendonitis [Unknown]
  - Varicose vein [Unknown]
